FAERS Safety Report 4825209-4 (Version None)
Quarter: 2005Q4

REPORT INFORMATION
  Report Type: 
  Country: None (occurrence: None)
  Receive Date: 20051109
  Receipt Date: 20051027
  Transmission Date: 20060501
  Serious: Yes (Hospitalization, Other)
  Sender: FDA-Public Use
  Company Number: ST-2005-008638

PATIENT
  Age: 47 Year
  Sex: Female
  Weight: 65 kg

DRUGS (11)
  1. OLMETEC [Suspect]
     Indication: HYPERTENSION
     Dosage: 20 MG QD PO
     Route: 048
     Dates: start: 20050910, end: 20050927
  2. FLUITRAN [Concomitant]
  3. CHOLEBRINE [Concomitant]
  4. GLUCOBAY [Concomitant]
  5. LIPANTIL [Concomitant]
  6. EUGLUCON [Concomitant]
  7. DOGMATYL [Concomitant]
  8. RISPERDAL [Concomitant]
  9. TRIHEXYPHENIDYL HCL [Concomitant]
  10. DEPAS [Concomitant]
  11. AMOBAN [Concomitant]

REACTIONS (2)
  - RENAL IMPAIRMENT [None]
  - RHABDOMYOLYSIS [None]
